FAERS Safety Report 9859857 (Version 1)
Quarter: 2014Q1

REPORT INFORMATION
  Report Type: Spontaneous
  Country: US (occurrence: US)
  Receive Date: 20140131
  Receipt Date: 20140131
  Transmission Date: 20141002
  Serious: Yes (Other)
  Sender: FDA-Public Use
  Company Number: US-ABBVIE-14P-163-1194254-00

PATIENT
  Age: 65 Year
  Sex: Male
  Weight: 73.55 kg

DRUGS (4)
  1. ANDROGEL [Suspect]
     Indication: BLOOD TESTOSTERONE DECREASED
     Dosage: 2 PUMPS
     Dates: start: 2012
  2. ATENOLOL [Concomitant]
     Indication: HYPERTENSION
  3. LIPITOR [Concomitant]
     Indication: BLOOD CHOLESTEROL INCREASED
  4. AMBIEN [Concomitant]
     Indication: INSOMNIA

REACTIONS (3)
  - Rotator cuff syndrome [Recovered/Resolved]
  - Exostosis [Unknown]
  - Musculoskeletal pain [Recovered/Resolved]
